FAERS Safety Report 4801983-8 (Version None)
Quarter: 2005Q4

REPORT INFORMATION
  Report Type: 
  Country: None (occurrence: None)
  Receive Date: 20051012
  Receipt Date: 20050928
  Transmission Date: 20060501
  Serious: Yes (Disabling)
  Sender: FDA-Public Use
  Company Number: 200212999

PATIENT
  Age: 51 Year
  Sex: Female
  Weight: 48.9885 kg

DRUGS (2)
  1. BOTOX COSMETIC [Suspect]
     Indication: SKIN WRINKLING
     Dosage: 155 UNITS PRN IM
     Route: 030
     Dates: start: 20020618
  2. HYALAFORM [Concomitant]

REACTIONS (26)
  - ARTHRALGIA [None]
  - BACK DISORDER [None]
  - BLOOD HEAVY METAL INCREASED [None]
  - BURNING SENSATION [None]
  - GLOSSODYNIA [None]
  - GROIN PAIN [None]
  - HYPOAESTHESIA [None]
  - INFLUENZA [None]
  - LARYNGEAL OEDEMA [None]
  - MUSCLE DISORDER [None]
  - MUSCLE STRAIN [None]
  - MUSCLE TIGHTNESS [None]
  - MUSCULOSKELETAL DISORDER [None]
  - MUSCULOSKELETAL STIFFNESS [None]
  - NEUROPATHY PERIPHERAL [None]
  - ORAL DISCOMFORT [None]
  - PARAESTHESIA [None]
  - PLANTAR FASCIITIS [None]
  - PYREXIA [None]
  - RADICULITIS [None]
  - RADICULITIS CERVICAL [None]
  - RADICULITIS LUMBOSACRAL [None]
  - RADICULOPATHY [None]
  - STRESS [None]
  - SWELLING [None]
  - THROAT IRRITATION [None]
